FAERS Safety Report 11573703 (Version 3)
Quarter: 2015Q4

REPORT INFORMATION
  Report Type: Spontaneous
  Country: US (occurrence: None)
  Receive Date: 20150929
  Receipt Date: 20151014
  Transmission Date: 20160304
  Serious: Yes (Other)
  Sender: FDA-Public Use
  Company Number: ADR-2015-01539

PATIENT
  Age: 26 Year
  Sex: Female

DRUGS (2)
  1. LIORESAL [Suspect]
     Active Substance: BACLOFEN
     Indication: MUSCLE SPASTICITY
     Dosage: 150 MCG/DAY
  2. BACLOFEN ORAL [Suspect]
     Active Substance: BACLOFEN
     Dosage: 10 MG BID

REACTIONS (4)
  - Feeling abnormal [None]
  - Pain [None]
  - Device dislocation [None]
  - Device breakage [None]
